FAERS Safety Report 11016295 (Version 2)
Quarter: 2015Q2

REPORT INFORMATION
  Report Type: Spontaneous
  Country: US (occurrence: US)
  Receive Date: 20150412
  Receipt Date: 20150525
  Transmission Date: 20150821
  Serious: No
  Sender: FDA-Public Use
  Company Number: US-JNJFOC-20130806262

PATIENT
  Age: 57 Year
  Sex: Female

DRUGS (2)
  1. SIMPONI [Suspect]
     Active Substance: GOLIMUMAB
     Indication: PSORIASIS
     Dosage: 50 MG/SOLUTION
     Route: 058
     Dates: start: 201306
  2. ST JOSEPHS  ASPIRIN [Concomitant]
     Indication: COAGULOPATHY
     Route: 065

REACTIONS (2)
  - Device failure [Unknown]
  - Drug dose omission [Not Recovered/Not Resolved]

NARRATIVE: CASE EVENT DATE: 20130810
